FAERS Safety Report 8098359-X (Version None)
Quarter: 2012Q1

REPORT INFORMATION
  Report Type: 
  Country: None (occurrence: None)
  Receive Date: 20120131
  Receipt Date: 20120123
  Transmission Date: 20120608
  Serious: Yes (Hospitalization)
  Sender: FDA-Public Use
  Company Number: US-US-EMD SERONO, INC.-7108727

PATIENT
  Sex: Female
  Weight: 91 kg

DRUGS (1)
  1. REBIF [Suspect]
     Indication: PRODUCT USED FOR UNKNOWN INDICATION
     Route: 058
     Dates: start: 20101222, end: 20120106

REACTIONS (2)
  - INTERVERTEBRAL DISC PROTRUSION [None]
  - VISUAL IMPAIRMENT [None]
